FAERS Safety Report 24763469 (Version 1)
Quarter: 2024Q4

REPORT INFORMATION
  Report Type: Spontaneous
  Country: IN (occurrence: IN)
  Receive Date: 20241223
  Receipt Date: 20241223
  Transmission Date: 20250114
  Serious: Yes (Death, Hospitalization)
  Sender: STRIDES
  Company Number: IN-STRIDES ARCOLAB LIMITED-2024SP016843

PATIENT
  Age: 35 Year
  Sex: Male

DRUGS (2)
  1. ATORVASTATIN [Suspect]
     Active Substance: ATORVASTATIN
     Indication: Type IIa hyperlipidaemia
     Dosage: 40 MILLIGRAM (TABLET)
     Route: 065
  2. STREPTOKINASE [Concomitant]
     Active Substance: STREPTOKINASE
     Indication: Thrombolysis
     Dosage: 1.5 MILLION INTERNATIONAL UNIT (1.5 MILLION UNITS)
     Route: 065

REACTIONS (5)
  - Cardiac death [Fatal]
  - Drug ineffective [Fatal]
  - Condition aggravated [Fatal]
  - Arteriosclerosis [Unknown]
  - Acute pulmonary oedema [Unknown]
